FAERS Safety Report 12959810 (Version 3)
Quarter: 2017Q1

REPORT INFORMATION
  Report Type: Report from Study
  Country: AU (occurrence: AU)
  Receive Date: 20161121
  Receipt Date: 20170309
  Transmission Date: 20170428
  Serious: Yes (Other)
  Sender: FDA-Public Use
  Company Number: AU-GLAXOSMITHKLINE-AU2016GSK170924

PATIENT
  Age: 73 Year
  Sex: Female
  Weight: 55 kg

DRUGS (17)
  1. BETALOC [Concomitant]
     Active Substance: METOPROLOL TARTRATE
     Indication: CHRONIC KIDNEY DISEASE
     Dosage: .25 MG, QD
     Route: 048
  2. ARIMIDEX [Concomitant]
     Active Substance: ANASTROZOLE
     Indication: BREAST CANCER
     Dosage: 1 MG, QD
     Route: 048
  3. SODIBIC [Concomitant]
     Indication: END STAGE RENAL DISEASE
     Dosage: 840 MG, TID
     Route: 048
  4. ZYLOPRIM [Concomitant]
     Active Substance: ALLOPURINOL
     Indication: GOUT
     Dosage: 100 MG, QD
     Route: 048
  5. ALU-TAB [Concomitant]
     Active Substance: ALUMINUM HYDROXIDE
     Indication: CHRONIC KIDNEY DISEASE
     Dosage: 600 MG, TID
     Route: 048
  6. LIPEX [Concomitant]
     Active Substance: SIMVASTATIN
     Indication: HYPERCHOLESTEROLAEMIA
     Dosage: 20 UG, QD
     Route: 048
  7. CELLUFRESH [Concomitant]
     Indication: DRY EYE
     Dosage: 5 MG/ML, PRN
     Route: 047
  8. RENAGEL [Concomitant]
     Active Substance: SEVELAMER HYDROCHLORIDE
     Indication: END STAGE RENAL DISEASE
     Dosage: 800 MG, TID
     Route: 048
  9. FLUTICASONE PROPIONATE+SALMETEROL XINAFOATE [Suspect]
     Active Substance: FLUTICASONE PROPIONATE\SALMETEROL XINAFOATE
     Indication: ASTHMA
     Dosage: 250 UG, BID
     Route: 055
     Dates: start: 20160920
  10. ADDOS [Concomitant]
     Indication: HYPERTENSION
     Dosage: 30 MG, QD
     Route: 048
  11. FOLATE [Concomitant]
     Active Substance: FOLATE SODIUM
     Indication: END STAGE RENAL DISEASE
     Dosage: 500 UG, QD
     Route: 048
  12. VENTOLIN [Suspect]
     Active Substance: ALBUTEROL SULFATE
     Indication: ASTHMA
     Dosage: 100 UNK, UNK
     Route: 055
     Dates: start: 20110601
  13. NORMACOL PLUS [Concomitant]
     Indication: CONSTIPATION
     Dosage: UNK
     Route: 048
  14. PREDNEFRIN FORTE [Concomitant]
     Active Substance: PHENYLEPHRINE HYDROCHLORIDE\PREDNISOLONE ACETATE
     Indication: UVEITIS
     Dosage: 0.12 %, QD
  15. ARANESP [Concomitant]
     Active Substance: DARBEPOETIN ALFA
     Indication: END STAGE RENAL DISEASE
     Dosage: 10 UNK, UNK
     Route: 058
  16. OSTELIN VITAMIN D [Concomitant]
     Active Substance: CHOLECALCIFEROL
     Indication: CHRONIC KIDNEY DISEASE
     Dosage: 1000 DF, QD
     Route: 048
  17. SPREN [Concomitant]
     Indication: END STAGE RENAL DISEASE
     Dosage: 100 MG, QD
     Route: 048

REACTIONS (3)
  - Breast cancer [Unknown]
  - Transfusion [Unknown]
  - Chronic kidney disease [Unknown]

NARRATIVE: CASE EVENT DATE: 20121017
